FAERS Safety Report 6307922-5 (Version None)
Quarter: 2009Q3

REPORT INFORMATION
  Report Type: 
  Country: None (occurrence: None)
  Receive Date: 20090813
  Receipt Date: 20090806
  Transmission Date: 20100115
  Serious: Yes (Hospitalization)
  Sender: FDA-Public Use
  Company Number: FR-JNJFOC-20090802056

PATIENT
  Sex: Male

DRUGS (11)
  1. HALDOL [Suspect]
     Indication: DRUG USE FOR UNKNOWN INDICATION
     Route: 030
  2. CLOZAPINE [Suspect]
     Route: 048
  3. CLOZAPINE [Suspect]
     Route: 048
  4. CLOZAPINE [Suspect]
     Indication: DRUG USE FOR UNKNOWN INDICATION
     Route: 048
  5. KARDEGIC [Concomitant]
     Route: 065
  6. IMOVANE [Concomitant]
     Route: 065
  7. MONICOR [Concomitant]
     Route: 065
  8. SIMVASTATIN [Concomitant]
     Route: 065
  9. LEPTICUR [Concomitant]
     Route: 065
  10. DUPHALAC [Concomitant]
     Route: 065
  11. NOCTAMIDE [Concomitant]
     Route: 065

REACTIONS (2)
  - CYTOLYTIC HEPATITIS [None]
  - JAUNDICE [None]
